FAERS Safety Report 23677128 (Version 6)
Quarter: 2024Q2

REPORT INFORMATION
  Report Type: Spontaneous
  Country: US (occurrence: US)
  Receive Date: 20240327
  Receipt Date: 20240423
  Transmission Date: 20240716
  Serious: No
  Sender: FDA-Public Use
  Company Number: US-PFIZER INC-202400067790

PATIENT
  Age: 13 Year
  Sex: Female
  Weight: 55.79 kg

DRUGS (1)
  1. GENOTROPIN [Suspect]
     Active Substance: SOMATROPIN
     Indication: Growth hormone deficiency
     Dosage: UNK

REACTIONS (7)
  - Drug dose omission by device [Unknown]
  - Device difficult to use [Unknown]
  - Poor quality device used [Unknown]
  - Device information output issue [Unknown]
  - Device delivery system issue [Unknown]
  - Device issue [Unknown]
  - Device physical property issue [Unknown]
